FAERS Safety Report 4567486-3 (Version None)
Quarter: 2005Q1

REPORT INFORMATION
  Report Type: 
  Country: None (occurrence: None)
  Receive Date: 20050127
  Receipt Date: 20050111
  Transmission Date: 20050727
  Serious: Yes (Hospitalization)
  Sender: FDA-Public Use
  Company Number: DSA_25635_2005

PATIENT
  Age: 72 Year
  Sex: Male

DRUGS (4)
  1. DILTIAZEM HCL [Suspect]
     Indication: ATRIAL FLUTTER
     Dosage: 1.5 ML/HR Q DAY IV
     Route: 042
     Dates: start: 20041217, end: 20041218
  2. NITROUS OXIDE [Concomitant]
  3. SEVOFLURANE [Concomitant]
  4. GLUCOSE [Concomitant]

REACTIONS (1)
  - ANAPHYLACTIC SHOCK [None]
